FAERS Safety Report 5400459-7 (Version None)
Quarter: 2007Q3

REPORT INFORMATION
  Report Type: 
  Country: None (occurrence: None)
  Receive Date: 20070725
  Receipt Date: 20070716
  Transmission Date: 20080115
  Serious: Yes (Other)
  Sender: FDA-Public Use
  Company Number: 17020

PATIENT
  Age: 53 Year
  Sex: Male

DRUGS (4)
  1. CYTARABINE [Suspect]
     Indication: NON-HODGKIN'S LYMPHOMA
     Dosage: 4 G/M2 PER_CYCLE
  2. DEXAMETHASONE 0.5MG TAB [Concomitant]
  3. CISPLATIN [Concomitant]
  4. GRANISETRON [Concomitant]

REACTIONS (2)
  - DIZZINESS [None]
  - SINUS BRADYCARDIA [None]
